FAERS Safety Report 6286598-X (Version None)
Quarter: 2009Q3

REPORT INFORMATION
  Report Type: 
  Country: None (occurrence: None)
  Receive Date: 20090727
  Receipt Date: 20090727
  Transmission Date: 20100115
  Serious: No
  Sender: FDA-Public Use
  Company Number: None

PATIENT

DRUGS (7)
  1. FELBATOL [Suspect]
     Dosage: 600MG TABLETS: 1200MG IN AM/600MG PM
  2. TOPAMAX [Suspect]
     Dosage: 100 MG BID
  3. GLYCOPYRROLATE [Suspect]
     Dosage: 0.5 MG TID
  4. KEPPRA [Concomitant]
  5. KETOGENIC DIET [Concomitant]
  6. TEGRETOL [Concomitant]
  7. DEPAKOTE [Concomitant]

REACTIONS (2)
  - DRUG EFFECT DECREASED [None]
  - TREATMENT FAILURE [None]
